FAERS Safety Report 16136049 (Version 10)
Quarter: 2019Q3

REPORT INFORMATION
  Report Type: Spontaneous
  Country: AT (occurrence: AT)
  Receive Date: 20190329
  Receipt Date: 20190923
  Transmission Date: 20191004
  Serious: Yes (Other)
  Sender: FDA-Public Use
  Company Number: PHHY2019AT071075

PATIENT
  Age: 58 Year
  Sex: Male

DRUGS (12)
  1. TALIMOGENE LAHERPAREPVEC [Suspect]
     Active Substance: TALIMOGENE LAHERPAREPVEC
     Dosage: 10 DOSES OF 108 PFU/MLUNK
     Route: 026
     Dates: start: 2017
  2. TALIMOGENE LAHERPAREPVEC [Suspect]
     Active Substance: TALIMOGENE LAHERPAREPVEC
     Indication: METASTATIC MALIGNANT MELANOMA
     Dosage: FIRST DOSE OF 10 6 PLAQUE-FORMING UNITS (PFU) ML -1, THREE WEEKS FOLLOWED BY WHICH 10 DOSES OF 10...
     Route: 026
     Dates: start: 2016, end: 201706
  3. ENVARSUS XR [Suspect]
     Active Substance: TACROLIMUS
     Indication: HEART TRANSPLANT
     Dosage: 7.5 MG, QD
     Route: 065
     Dates: start: 2016, end: 2016
  4. MYCOPHENOLATE MOFETIL. [Suspect]
     Active Substance: MYCOPHENOLATE MOFETIL
     Indication: HEART TRANSPLANT
     Dosage: 2 G, QD
     Route: 065
  5. MYCOPHENOLATE MOFETIL. [Suspect]
     Active Substance: MYCOPHENOLATE MOFETIL
     Indication: RENAL TRANSPLANT
  6. PREDNISOLONE. [Suspect]
     Active Substance: PREDNISOLONE
     Indication: HEART TRANSPLANT
     Dosage: 10 MG, QD
     Route: 065
     Dates: start: 2016, end: 2016
  7. ENVARSUS XR [Suspect]
     Active Substance: TACROLIMUS
     Indication: RENAL TRANSPLANT
     Dosage: (FIRST DOSE OF 10 6 PLAQUE FORMING UNITS (PFU) ML 1, THREE WEEKS FOLLOWED BY WHICH 10 DOSES OF 10)
     Route: 026
     Dates: start: 2016, end: 201706
  8. MYCOPHENOLATE MOFETIL. [Suspect]
     Active Substance: MYCOPHENOLATE MOFETIL
     Indication: IMMUNOSUPPRESSANT DRUG THERAPY
  9. PREDNISOLONE. [Suspect]
     Active Substance: PREDNISOLONE
     Indication: IMMUNOSUPPRESSANT DRUG THERAPY
  10. ENVARSUS XR [Suspect]
     Active Substance: TACROLIMUS
     Indication: METASTATIC MALIGNANT MELANOMA
  11. PREDNISOLONE. [Suspect]
     Active Substance: PREDNISOLONE
     Indication: RENAL TRANSPLANT
  12. ENVARSUS XR [Suspect]
     Active Substance: TACROLIMUS
     Indication: IMMUNOSUPPRESSANT DRUG THERAPY
     Dosage: 2 G, QD
     Route: 065

REACTIONS (8)
  - Malignant melanoma [Recovered/Resolved]
  - Metastatic malignant melanoma [Recovered/Resolved]
  - Off label use [Unknown]
  - Malignant neoplasm progression [Recovered/Resolved]
  - Erythema [Unknown]
  - Skin hypopigmentation [Unknown]
  - Pyrexia [Unknown]
  - Product use in unapproved indication [Unknown]

NARRATIVE: CASE EVENT DATE: 201509
